FAERS Safety Report 13119458 (Version 2)
Quarter: 2017Q2

REPORT INFORMATION
  Report Type: Report from Study
  Country: US (occurrence: US)
  Receive Date: 20170116
  Receipt Date: 20170417
  Transmission Date: 20170830
  Serious: Yes (Other)
  Sender: FDA-Public Use
  Company Number: US-AMGEN-USASL2017005650

PATIENT
  Sex: Female

DRUGS (1)
  1. ENBREL [Suspect]
     Active Substance: ETANERCEPT
     Indication: RHEUMATOID ARTHRITIS
     Dosage: 50 MG, QWK
     Route: 065
     Dates: end: 20161229

REACTIONS (5)
  - Tooth fracture [Unknown]
  - Musculoskeletal stiffness [Unknown]
  - Abscess oral [Unknown]
  - Tooth abscess [Unknown]
  - Fatigue [Unknown]

NARRATIVE: CASE EVENT DATE: 2017
